FAERS Safety Report 11788695 (Version 1)
Quarter: 2015Q4

REPORT INFORMATION
  Report Type: Spontaneous
  Country: US (occurrence: US)
  Receive Date: 20151201
  Receipt Date: 20151201
  Transmission Date: 20160305
  Serious: Yes (Other)
  Sender: FDA-Public Use
  Company Number: US-SUN PHARMACEUTICAL INDUSTRIES LTD-2015SUN00077

PATIENT

DRUGS (3)
  1. DOXORUBICIN HYDROCHLORIDE LIPOSOME INJECTION USP 2MG/ML [Suspect]
     Active Substance: DOXORUBICIN HYDROCHLORIDE
     Indication: PRODUCT USED FOR UNKNOWN INDICATION
     Route: 065
  2. DOXORUBICIN HYDROCHLORIDE LIPOSOME INJECTION USP 2MG/ML [Suspect]
     Active Substance: DOXORUBICIN HYDROCHLORIDE
     Dosage: 25 MG/M2, THIRD DOSE
     Route: 065
  3. DOXORUBICIN HYDROCHLORIDE LIPOSOME INJECTION USP 2MG/ML [Suspect]
     Active Substance: DOXORUBICIN HYDROCHLORIDE
     Dosage: 40 MG/M2, SECOND DOSE
     Route: 065

REACTIONS (2)
  - Rash erythematous [Unknown]
  - Mucosal inflammation [Unknown]
